FAERS Safety Report 8404829-4 (Version None)
Quarter: 2012Q2

REPORT INFORMATION
  Report Type: 
  Country: None (occurrence: None)
  Receive Date: 20120601
  Receipt Date: 20120525
  Transmission Date: 20120825
  Serious: Yes (Other)
  Sender: FDA-Public Use
  Company Number: US-RB-039867-12

PATIENT
  Age: 58 Year
  Sex: Male

DRUGS (8)
  1. PRILOSEC [Concomitant]
     Indication: IRRITABLE BOWEL SYNDROME
     Dosage: UNKNOWN DOSAGE DETAILS
     Route: 065
  2. KLONOPIN [Concomitant]
     Indication: ANXIETY
     Dosage: UNKNOWN
     Route: 065
  3. PRILOSEC [Concomitant]
     Indication: ABDOMINAL DISCOMFORT
     Dosage: UNKNOWN DOSAGE DETAILS
     Route: 065
  4. LACTOLOSE [Concomitant]
     Indication: LACTOSE INTOLERANCE
     Dosage: UNKNOWN DOSAGE DETAILS
     Route: 065
  5. TRAZODONE HCL [Concomitant]
     Indication: SLEEP DISORDER
     Dosage: UNKNOWN DOSAGE DETAILS
     Route: 065
  6. REMERON [Concomitant]
     Indication: DEPRESSION
     Dosage: UNKNOWN DOSAGE DETAILS
     Route: 065
  7. IBUPROFEN [Concomitant]
     Indication: PAIN
     Dosage: UNKNOWN DOSAGE DETAILS
     Route: 065
  8. SUBOXONE [Suspect]
     Indication: DRUG DEPENDENCE
     Dosage: FROM 24 MG/DAY TO 12 MG/DAY
     Route: 060
     Dates: start: 20080301, end: 20120301

REACTIONS (5)
  - HAEMATURIA [None]
  - UNDERDOSE [None]
  - ABDOMINAL NEOPLASM [None]
  - WRONG TECHNIQUE IN DRUG USAGE PROCESS [None]
  - PAIN [None]
